FAERS Safety Report 23654855 (Version 1)
Quarter: 2024Q1

REPORT INFORMATION
  Report Type: Spontaneous
  Country: CN (occurrence: CN)
  Receive Date: 20240320
  Receipt Date: 20240320
  Transmission Date: 20240409
  Serious: Yes (Hospitalization, Other)
  Sender: FDA-Public Use
  Company Number: CN-002147023-NVSC2024CN057008

PATIENT

DRUGS (1)
  1. SACUBITRIL\VALSARTAN [Suspect]
     Active Substance: SACUBITRIL\VALSARTAN
     Indication: End stage renal disease
     Dosage: 50 MG, BID,DOSE WERE ADJUSTED ACCORDING TO THE BLOOD PRESSURE STANDARD
     Route: 065

REACTIONS (2)
  - Malignant hypertension [Unknown]
  - Product use in unapproved indication [Unknown]
